FAERS Safety Report 6660469-9 (Version None)
Quarter: 2010Q1

REPORT INFORMATION
  Report Type: 
  Country: None (occurrence: None)
  Receive Date: 20100326
  Receipt Date: 20100315
  Transmission Date: 20100710
  Serious: Yes (Hospitalization)
  Sender: FDA-Public Use
  Company Number: DSJ-2010-04354

PATIENT
  Age: 52 Year
  Sex: Female

DRUGS (3)
  1. BENICAR HCT [Suspect]
     Indication: HYPERTENSION
     Dosage: 20/12.5 MG 91 IN 1 D), PER ORAL
     Route: 048
     Dates: start: 20080101
  2. LEVOTHYROXINE SODIUM (LEVOTHYROXINE SODIUM) (LEVOTHYROXINE SODIUM) [Concomitant]
  3. OMEPRAZOLE [Concomitant]

REACTIONS (2)
  - CEREBROVASCULAR ACCIDENT [None]
  - MUSCLE CONTRACTIONS INVOLUNTARY [None]
